FAERS Safety Report 9311895 (Version 1)
Quarter: 2013Q2

REPORT INFORMATION
  Report Type: Report from Study
  Country: CA (occurrence: CA)
  Receive Date: 20130528
  Receipt Date: 20130528
  Transmission Date: 20140414
  Serious: Yes (Hospitalization)
  Sender: FDA-Public Use
  Company Number: CA-JNJFOC-20130515889

PATIENT
  Age: 20 Year
  Sex: Female
  Weight: 41 kg

DRUGS (1)
  1. REMICADE [Suspect]
     Indication: CROHN^S DISEASE
     Route: 042
     Dates: start: 201210

REACTIONS (3)
  - Crohn^s disease [Unknown]
  - Intestinal stenosis [Unknown]
  - Scar [Unknown]
